FAERS Safety Report 21747388 (Version 1)
Quarter: 2022Q4

REPORT INFORMATION
  Report Type: Spontaneous
  Country: GB (occurrence: GB)
  Receive Date: 20221219
  Receipt Date: 20221219
  Transmission Date: 20230113
  Serious: Yes (Other)
  Sender: FDA-Public Use
  Company Number: GB-BRISTOL-MYERS SQUIBB COMPANY-2022-148074

PATIENT
  Age: 72 Year
  Sex: Male

DRUGS (2)
  1. OPDIVO [Suspect]
     Active Substance: NIVOLUMAB
     Indication: Pleural mesothelioma malignant
     Dates: start: 202206
  2. YERVOY [Suspect]
     Active Substance: IPILIMUMAB
     Indication: Pleural mesothelioma malignant
     Dates: start: 202206

REACTIONS (9)
  - Immune-mediated enterocolitis [Unknown]
  - Immune-mediated thyroiditis [Unknown]
  - Immune-mediated hepatitis [Unknown]
  - Off label use [Unknown]
  - Blood glucose abnormal [Unknown]
  - Immune-mediated dermatitis [Unknown]
  - Type 1 diabetes mellitus [Unknown]
  - Steroid diabetes [Unknown]
  - Psoriasis [Unknown]

NARRATIVE: CASE EVENT DATE: 20220728
